FAERS Safety Report 22119310 (Version 2)
Quarter: 2023Q1

REPORT INFORMATION
  Report Type: Other
  Country: US (occurrence: None)
  Receive Date: 20230321
  Receipt Date: 20230324
  Transmission Date: 20230417
  Serious: Yes (Death)
  Sender: FDA-Public Use
  Company Number: US-ROCHE-3313726

PATIENT
  Age: 93 Year
  Sex: Female
  Weight: 46.762 kg

DRUGS (7)
  1. ERIVEDGE [Suspect]
     Active Substance: VISMODEGIB
     Indication: Basal cell carcinoma
     Dosage: 1 CAPSULE BY MOUTH ONCE PER DAY
     Route: 048
  2. ATORVASTATIN [Concomitant]
     Active Substance: ATORVASTATIN
     Route: 048
  3. CARVEDILOL [Concomitant]
     Active Substance: CARVEDILOL
     Route: 048
  4. CLOPIDOGREL [Concomitant]
     Active Substance: CLOPIDOGREL BISULFATE
     Route: 048
  5. LASIX [Concomitant]
     Active Substance: FUROSEMIDE
     Route: 048
  6. SYNTHROID [Concomitant]
     Active Substance: LEVOTHYROXINE SODIUM
     Route: 048
  7. POTASSIUM CHLORIDE [Concomitant]
     Active Substance: POTASSIUM CHLORIDE

REACTIONS (1)
  - Myocardial infarction [Fatal]
